FAERS Safety Report 5607848-6 (Version None)
Quarter: 2008Q1

REPORT INFORMATION
  Report Type: 
  Country: None (occurrence: None)
  Receive Date: 20080130
  Receipt Date: 20080123
  Transmission Date: 20080703
  Serious: Yes (Hospitalization)
  Sender: FDA-Public Use
  Company Number: FR-AVENTIS-200810375FR

PATIENT
  Age: 89 Year
  Sex: Male

DRUGS (10)
  1. LASILIX                            /00032601/ [Suspect]
     Route: 048
     Dates: end: 20071011
  2. ALDALIX [Suspect]
     Route: 048
     Dates: start: 20071010, end: 20071011
  3. DIFFU K [Concomitant]
     Route: 048
     Dates: start: 20071010, end: 20071011
  4. OXEOL [Concomitant]
     Indication: ASTHMA
     Route: 048
     Dates: end: 20071011
  5. SINGULAIR [Concomitant]
     Indication: ASTHMA
     Route: 048
     Dates: end: 20071011
  6. SERETIDE DISCUS [Concomitant]
     Indication: ASTHMA
     Route: 055
     Dates: end: 20071011
  7. SPIRIVA [Concomitant]
     Route: 055
     Dates: end: 20071011
  8. NITROGLYCERIN [Concomitant]
  9. COMBIVENT                          /01033501/ [Concomitant]
  10. ZOLADEX [Concomitant]

REACTIONS (4)
  - DRUG INTERACTION [None]
  - HYPONATRAEMIA [None]
  - ORTHOSTATIC HYPOTENSION [None]
  - RENAL FAILURE ACUTE [None]
